FAERS Safety Report 5248059-6 (Version None)
Quarter: 2007Q1

REPORT INFORMATION
  Report Type: 
  Country: None (occurrence: None)
  Receive Date: 20070222
  Receipt Date: 20070205
  Transmission Date: 20070707
  Serious: Yes (Hospitalization)
  Sender: FDA-Public Use
  Company Number: 8021902

PATIENT
  Age: 31 Year
  Sex: Female

DRUGS (2)
  1. KEPPRA [Suspect]
     Indication: EPILEPSY
     Dosage: 2.5 G /D
     Dates: start: 20050601
  2. CARBAMAZEPINE [Concomitant]

REACTIONS (1)
  - RESPIRATORY DEPRESSION [None]
